FAERS Safety Report 21008174 (Version 1)
Quarter: 2022Q2

REPORT INFORMATION
  Report Type: Spontaneous
  Country: EG (occurrence: EG)
  Receive Date: 20220627
  Receipt Date: 20220627
  Transmission Date: 20220720
  Serious: Yes (Hospitalization)
  Sender: FDA-Public Use
  Company Number: EG-NOVOPROD-929522

PATIENT
  Age: 67 Year
  Sex: Male
  Weight: 70 kg

DRUGS (7)
  1. NOVORAPID [Suspect]
     Active Substance: INSULIN ASPART
     Indication: Diabetes mellitus
     Dosage: 1/25
     Route: 065
  2. LUSTRAL [Concomitant]
     Active Substance: SERTRALINE HYDROCHLORIDE
     Indication: Seizure
     Dosage: 50 (1 TABLET OR HALF)
     Route: 048
     Dates: start: 2015
  3. SAMOZINA [CITICOLINE] [Concomitant]
     Indication: Seizure
     Dosage: 10 ML PER DAY
     Route: 065
     Dates: start: 2015
  4. VALSARTAN [Concomitant]
     Active Substance: VALSARTAN
     Indication: Hypertension
     Dosage: 1 TAB/DAY MORNING
     Route: 048
     Dates: start: 2019
  5. BISOPROLOL FUMARATE [Concomitant]
     Active Substance: BISOPROLOL FUMARATE
     Indication: Hypertension
     Dosage: 1 TAB/DAY
     Route: 048
     Dates: start: 2019
  6. TAMSULOSIN HYDROCHLORIDE [Concomitant]
     Active Substance: TAMSULOSIN HYDROCHLORIDE
     Indication: Urethritis
     Dosage: 1 TAB/DAY
     Route: 048
     Dates: start: 2019
  7. PANADOL [Concomitant]
     Active Substance: ACETAMINOPHEN
     Indication: Pain
     Dosage: 2 TAB DAY AFTER DAY
     Route: 048
     Dates: start: 2011

REACTIONS (1)
  - Intensive care [Unknown]
